FAERS Safety Report 6629637-6 (Version None)
Quarter: 2010Q1

REPORT INFORMATION
  Report Type: 
  Country: None (occurrence: None)
  Receive Date: 20100310
  Receipt Date: 20100310
  Transmission Date: 20100710
  Serious: No
  Sender: FDA-Public Use
  Company Number: None

PATIENT
  Age: 60 Year
  Sex: Female
  Weight: 60.782 kg

DRUGS (1)
  1. TRAMADOL HCL [Suspect]
     Indication: OSTEOARTHRITIS
     Dosage: 1 EVERY 4 HRS
     Dates: start: 20080401, end: 20100201

REACTIONS (7)
  - ABNORMAL BEHAVIOUR [None]
  - ASTHENIA [None]
  - DYSPNOEA [None]
  - EMOTIONAL DISORDER [None]
  - INSOMNIA [None]
  - LOSS OF LIBIDO [None]
  - MUSCLE TWITCHING [None]
